FAERS Safety Report 10270206 (Version 1)
Quarter: 2014Q2

REPORT INFORMATION
  Report Type: Spontaneous
  Country: DE (occurrence: None)
  Receive Date: 20140625
  Receipt Date: 20140625
  Transmission Date: 20141212
  Serious: Yes (Death)
  Sender: FDA-Public Use
  Company Number: FK201402457

PATIENT
  Age: 62 Year
  Sex: Female

DRUGS (6)
  1. MORPHINE [Suspect]
     Indication: THYROID CANCER
  2. FENTANYL PATCH [Suspect]
     Indication: THYROID CANCER
     Dosage: 150 UG, TRANSDERMAL
     Route: 062
  3. INSULIN (INSULIN) [Suspect]
     Indication: INTENTIONAL OVERDOSE
  4. INSULIN LISPRO (INSULIN LISPRO) [Suspect]
     Indication: INTENTIONAL OVERDOSE
  5. INSULIN LISPRO (INSULIN LISPRO) [Suspect]
     Indication: INTENTIONAL PRODUCT MISUSE
  6. METOCLOPRAMIDE (METOCLOPRAMIDE) [Concomitant]

REACTIONS (7)
  - Hypoglycaemia [None]
  - Completed suicide [None]
  - Intentional overdose [None]
  - Nausea [None]
  - Diarrhoea [None]
  - Self-medication [None]
  - Respiratory arrest [None]
